FAERS Safety Report 5525410-0 (Version None)
Quarter: 2007Q4

REPORT INFORMATION
  Report Type: 
  Country: None (occurrence: None)
  Receive Date: 20071120
  Receipt Date: 20050301
  Transmission Date: 20080405
  Serious: No
  Sender: FDA-Public Use
  Company Number: 20074257

PATIENT
  Sex: Female

DRUGS (1)
  1. LIORESAL [Suspect]
     Indication: MUSCLE SPASTICITY
     Dosage: MCG, DAILY, INTRATHECAL
     Route: 037

REACTIONS (6)
  - FEELING OF BODY TEMPERATURE CHANGE [None]
  - MUSCLE SPASMS [None]
  - PAIN [None]
  - PARAESTHESIA [None]
  - SUICIDAL IDEATION [None]
  - WITHDRAWAL SYNDROME [None]
